FAERS Safety Report 9707344 (Version 1)
Quarter: 2013Q4

REPORT INFORMATION
  Report Type: Spontaneous
  Country: US (occurrence: US)
  Receive Date: 20131125
  Receipt Date: 20131125
  Transmission Date: 20140711
  Serious: No
  Sender: FDA-Public Use
  Company Number: US-GLAXOSMITHKLINE-A1024277A

PATIENT
  Age: 84 Year
  Sex: Female

DRUGS (3)
  1. FLOVENT [Suspect]
     Indication: EMPHYSEMA
     Dosage: 1PUFF TWICE PER DAY
     Route: 055
     Dates: start: 201301
  2. NEBULIZER [Concomitant]
  3. OXYGEN [Concomitant]

REACTIONS (1)
  - Respiration abnormal [Not Recovered/Not Resolved]
